FAERS Safety Report 4672987-3 (Version None)
Quarter: 2005Q2

REPORT INFORMATION
  Report Type: 
  Country: None (occurrence: None)
  Receive Date: 20050524
  Receipt Date: 20050510
  Transmission Date: 20051028
  Serious: Yes (Hospitalization)
  Sender: FDA-Public Use
  Company Number: DE-MERCK-0505DEU00063

PATIENT
  Age: 70 Year
  Sex: Male

DRUGS (2)
  1. VIOXX [Suspect]
     Route: 048
     Dates: start: 20020101, end: 20040101
  2. VALDECOXIB [Suspect]
     Route: 048
     Dates: start: 20020101, end: 20030101

REACTIONS (4)
  - CORONARY ARTERY DISEASE [None]
  - CORONARY ARTERY OCCLUSION [None]
  - INTERVERTEBRAL DISC DISORDER [None]
  - MYOCARDIAL INFARCTION [None]
